FAERS Safety Report 18578931 (Version 1)
Quarter: 2020Q4

REPORT INFORMATION
  Report Type: Spontaneous
  Country: JP (occurrence: JP)
  Receive Date: 20201204
  Receipt Date: 20201204
  Transmission Date: 20210114
  Serious: Yes (Other)
  Sender: FDA-Public Use
  Company Number: JP-TEVA-2020-JP-1856561

PATIENT
  Sex: Female

DRUGS (3)
  1. NEUPRO [Concomitant]
     Active Substance: ROTIGOTINE
     Dates: start: 20200310, end: 20201028
  2. LEVODOPA [Concomitant]
     Active Substance: LEVODOPA
     Dates: start: 20200310
  3. AZILECT [Suspect]
     Active Substance: RASAGILINE MESYLATE
     Indication: COGNITIVE DISORDER
     Route: 065
     Dates: start: 20200205, end: 20201028

REACTIONS (6)
  - Off label use [Unknown]
  - Camptocormia [Unknown]
  - Hypoaesthesia [Unknown]
  - Oedema peripheral [Unknown]
  - Spinal stenosis [Unknown]
  - Coordination abnormal [Unknown]

NARRATIVE: CASE EVENT DATE: 20200205
